FAERS Safety Report 24911246 (Version 1)
Quarter: 2025Q1

REPORT INFORMATION
  Report Type: Spontaneous
  Country: US (occurrence: None)
  Receive Date: 20250131
  Receipt Date: 20250131
  Transmission Date: 20250409
  Serious: Yes (Other)
  Sender: FDA-CTU
  Company Number: None

PATIENT
  Age: 73 Year
  Sex: Female

DRUGS (1)
  1. HUMIRA [Suspect]
     Active Substance: ADALIMUMAB
     Indication: Rheumatoid arthritis
     Dosage: FREQUENCY : WEEKLY;?

REACTIONS (10)
  - Arthralgia [None]
  - Memory impairment [None]
  - Injection site urticaria [None]
  - Rheumatoid arthritis [None]
  - Nasopharyngitis [None]
  - Asthenia [None]
  - Joint swelling [None]
  - Musculoskeletal discomfort [None]
  - Finger deformity [None]
  - Hand deformity [None]
